FAERS Safety Report 20615564 (Version 1)
Quarter: 2022Q1

REPORT INFORMATION
  Report Type: Report from Study
  Country: SE (occurrence: NO)
  Receive Date: 20220321
  Receipt Date: 20220321
  Transmission Date: 20220424
  Serious: Yes (Other)
  Sender: FDA-Public Use
  Company Number: SE-BTG-201400042

PATIENT
  Age: 14 Year
  Sex: Male
  Weight: 36 kg

DRUGS (7)
  1. VORAXAZE [Suspect]
     Active Substance: GLUCARPIDASE
     Indication: Toxicity to various agents
     Dosage: 2000 UNITS, UNK
     Route: 037
     Dates: start: 20140914, end: 20140914
  2. METHOTREXATE [Concomitant]
     Active Substance: METHOTREXATE
     Indication: Product used for unknown indication
     Dosage: 240 MG
     Route: 037
  3. METHOTREXATE [Concomitant]
     Active Substance: METHOTREXATE
     Dosage: UNK
     Route: 037
     Dates: start: 20140926
  4. DEXA                               /00008501/ [Concomitant]
     Indication: Toxicity to various agents
     Dosage: UNK
     Route: 065
     Dates: end: 20140928
  5. LEUCOVORIN CALCIUM [Concomitant]
     Active Substance: LEUCOVORIN CALCIUM
     Indication: Toxicity to various agents
     Dosage: UNK
     Route: 042
  6. SODIUM CHLORIDE [Concomitant]
     Active Substance: SODIUM CHLORIDE
     Indication: Cerebrospinal fluid drainage
     Dosage: UNK
     Route: 065
  7. DIAZEPAM [Concomitant]
     Active Substance: DIAZEPAM
     Indication: Epilepsy
     Route: 042

REACTIONS (2)
  - Off label use [Unknown]
  - Cerebrospinal fluid leakage [Recovered/Resolved]

NARRATIVE: CASE EVENT DATE: 20140914
